FAERS Safety Report 6856591-4 (Version None)
Quarter: 2010Q3

REPORT INFORMATION
  Report Type: 
  Country: None (occurrence: None)
  Receive Date: 20100719
  Receipt Date: 20100712
  Transmission Date: 20110219
  Serious: Yes (Other)
  Sender: FDA-Public Use
  Company Number: CN-PFIZER INC-2010080607

PATIENT
  Age: 12 Month

DRUGS (1)
  1. SOLU-MEDROL [Suspect]
     Indication: ENCEPHALITIS BRAIN STEM
     Dosage: 10 MG/KG, UNK

REACTIONS (1)
  - INCREASED UPPER AIRWAY SECRETION [None]
